FAERS Safety Report 10215061 (Version 1)
Quarter: 2014Q2

REPORT INFORMATION
  Report Type: Spontaneous
  Country: US (occurrence: US)
  Receive Date: 20140603
  Receipt Date: 20140603
  Transmission Date: 20141212
  Serious: Yes (Hospitalization)
  Sender: FDA-Public Use
  Company Number: US-GE HEALTHCARE MEDICAL DIAGNOSTICS-OMPQ-PR-1405S-0543

PATIENT
  Age: 46 Year
  Sex: Female

DRUGS (3)
  1. OMNIPAQUE [Suspect]
     Indication: PAIN IN JAW
     Route: 042
     Dates: start: 20140521, end: 20140521
  2. OMNIPAQUE [Suspect]
     Indication: CHEST DISCOMFORT
  3. OMNIPAQUE [Suspect]
     Indication: DIAGNOSTIC PROCEDURE

REACTIONS (3)
  - Acute coronary syndrome [Unknown]
  - Chest discomfort [Unknown]
  - Dyspnoea [Unknown]
